FAERS Safety Report 8786101 (Version 1)
Quarter: 2012Q4

REPORT INFORMATION
  Report Type: Report from Study
  Country: BR (occurrence: BR)
  Receive Date: 20120914
  Receipt Date: 20120914
  Transmission Date: 20130627
  Serious: Yes (Hospitalization, Other)
  Sender: FDA-Public Use
  Company Number: BR-US-EMD SERONO, INC.-7160316

PATIENT
  Sex: Male

DRUGS (1)
  1. REBIF [Suspect]
     Indication: RELAPSING-REMITTING MULTIPLE SCLEROSIS
     Dates: start: 19990101

REACTIONS (9)
  - Paraesthesia [Recovering/Resolving]
  - Sensory loss [Recovering/Resolving]
  - Faecal incontinence [Recovering/Resolving]
  - Urinary incontinence [Recovering/Resolving]
  - Hypovitaminosis [Unknown]
  - Iron deficiency [Unknown]
  - Obesity surgery [Unknown]
  - Hypoaesthesia [Unknown]
  - Insomnia [Unknown]
